FAERS Safety Report 4765698-7 (Version None)
Quarter: 2005Q3

REPORT INFORMATION
  Report Type: 
  Country: None (occurrence: None)
  Receive Date: 20050912
  Receipt Date: 20050831
  Transmission Date: 20060218
  Serious: Yes (Disabling)
  Sender: FDA-Public Use
  Company Number: FR-BRISTOL-MYERS SQUIBB COMPANY-13098074

PATIENT
  Age: 50 Year
  Sex: Female

DRUGS (1)
  1. ELISOR TABS [Suspect]
     Route: 048
     Dates: start: 20041001

REACTIONS (1)
  - MUSCLE RUPTURE [None]
